FAERS Safety Report 4795217-0 (Version None)
Quarter: 2005Q4

REPORT INFORMATION
  Report Type: 
  Country: None (occurrence: None)
  Receive Date: 20051005
  Receipt Date: 20051005
  Transmission Date: 20060501
  Serious: Yes (Other)
  Sender: FDA-Public Use
  Company Number: None

PATIENT
  Age: 63 Year
  Sex: Male
  Weight: 62.3 kg

DRUGS (5)
  1. LEVAQUIN [Suspect]
     Indication: INFECTION
     Dosage: 1 GM QD IV
     Route: 042
     Dates: start: 20050914, end: 20050921
  2. FLORINEF [Concomitant]
  3. FLUCONAZOLE [Concomitant]
  4. MINOCYCLIN [Concomitant]
  5. PROAMATINE [Concomitant]

REACTIONS (1)
  - CONVULSION [None]
